FAERS Safety Report 11124843 (Version 4)
Quarter: 2016Q2

REPORT INFORMATION
  Report Type: Spontaneous
  Country: US (occurrence: US)
  Receive Date: 20150520
  Receipt Date: 20160408
  Transmission Date: 20160815
  Serious: Yes (Hospitalization, Other)
  Sender: FDA-Public Use
  Company Number: US-PFIZER INC-2015163690

PATIENT
  Age: 67 Year
  Sex: Female
  Weight: 63 kg

DRUGS (7)
  1. ASA [Concomitant]
     Active Substance: ASPIRIN
  2. METOPROLOL. [Concomitant]
     Active Substance: METOPROLOL
     Indication: CARDIAC DISORDER
     Dosage: UNK, 2X/DAY
  3. DILANTIN [Suspect]
     Active Substance: PHENYTOIN
     Dosage: 900 MG, DAILY (300 MG TABLET 3 A DAY)
  4. NEURONTIN [Suspect]
     Active Substance: GABAPENTIN
     Indication: SEIZURE
  5. BIOTIN [Concomitant]
     Active Substance: BIOTIN
  6. NEURONTIN [Suspect]
     Active Substance: GABAPENTIN
     Indication: EPILEPSY
     Dosage: 300 MG, 9 TIMES A DAY
  7. PREVACID [Concomitant]
     Active Substance: LANSOPRAZOLE

REACTIONS (28)
  - Gastric disorder [Unknown]
  - Condition aggravated [Unknown]
  - Nausea [Unknown]
  - Hiccups [Unknown]
  - Gastrooesophageal reflux disease [Unknown]
  - Cardiomegaly [Unknown]
  - Malaise [Unknown]
  - Depressed mood [Unknown]
  - Vomiting [Unknown]
  - Vision blurred [Unknown]
  - Pericardial effusion [Unknown]
  - Atrial fibrillation [Unknown]
  - Neoplasm [Unknown]
  - Tremor [Unknown]
  - Activities of daily living impaired [Unknown]
  - Dysphonia [Unknown]
  - Pulmonary oedema [Unknown]
  - Systemic lupus erythematosus [Unknown]
  - Gastrointestinal wall thickening [Unknown]
  - Depression [Unknown]
  - Amnesia [Unknown]
  - Bedridden [Unknown]
  - Eating disorder [Unknown]
  - Fall [Unknown]
  - Parasitic gastroenteritis [Unknown]
  - Crying [Unknown]
  - Headache [Unknown]
  - Insomnia [Unknown]

NARRATIVE: CASE EVENT DATE: 201311
